FAERS Safety Report 5825567-8 (Version None)
Quarter: 2008Q3

REPORT INFORMATION
  Report Type: 
  Country: None (occurrence: None)
  Receive Date: 20080729
  Receipt Date: 20080723
  Transmission Date: 20090109
  Serious: Yes (Hospitalization)
  Sender: FDA-Public Use
  Company Number: PHHO1999CA06432

PATIENT
  Sex: Female
  Weight: 66 kg

DRUGS (2)
  1. RAD 666 RAD+ [Suspect]
     Dosage: CODE NOT BROKEN
     Route: 048
     Dates: start: 19990213, end: 19990217
  2. NEORAL [Suspect]
     Route: 048
     Dates: start: 19990216, end: 19990217

REACTIONS (1)
  - NEUROTOXICITY [None]
